FAERS Safety Report 4501520-1 (Version None)
Quarter: 2004Q4

REPORT INFORMATION
  Report Type: 
  Country: None (occurrence: None)
  Receive Date: 20041109
  Receipt Date: 20041102
  Transmission Date: 20050328
  Serious: Yes (Hospitalization)
  Sender: FDA-Public Use
  Company Number: 2004CG01324

PATIENT
  Age: 77 Year
  Sex: Male
  Weight: 76 kg

DRUGS (4)
  1. ZESTORETIC [Suspect]
     Dosage: 1 DF QD PO
     Route: 048
  2. TANAKAN [Suspect]
     Dosage: 2 DF QD PO
     Route: 048
  3. ZOCOR [Suspect]
     Dosage: 10 MG QD PO
     Route: 048
  4. VIOXX [Suspect]
     Dosage: 25 MG QD PO
     Route: 048
     Dates: start: 20040215, end: 20040610

REACTIONS (7)
  - ANTI FACTOR VIII ANTIBODY POSITIVE [None]
  - COAGULATION FACTOR VIII LEVEL DECREASED [None]
  - COAGULATION TIME PROLONGED [None]
  - COAGULATION TIME SHORTENED [None]
  - HAEMATOMA [None]
  - INTERMITTENT CLAUDICATION [None]
  - VON WILLEBRAND'S DISEASE [None]
